FAERS Safety Report 20999427 (Version 2)
Quarter: 2022Q2

REPORT INFORMATION
  Report Type: Spontaneous
  Country: US (occurrence: US)
  Receive Date: 20220623
  Receipt Date: 20220628
  Transmission Date: 20220721
  Serious: No
  Sender: FDA-Public Use
  Company Number: US-BAYER-2022A087716

PATIENT
  Age: 71 Year
  Sex: Female

DRUGS (2)
  1. CLIMARA [Suspect]
     Active Substance: ESTRADIOL
     Indication: Hormone replacement therapy
     Dosage: UNK
     Route: 062
     Dates: start: 2000
  2. CLIMARA [Suspect]
     Active Substance: ESTRADIOL
     Indication: Osteoporosis

REACTIONS (3)
  - Device adhesion issue [None]
  - Device material issue [None]
  - Arthralgia [None]

NARRATIVE: CASE EVENT DATE: 20220620
